FAERS Safety Report 7751004-2 (Version None)
Quarter: 2011Q3

REPORT INFORMATION
  Report Type: 
  Country: None (occurrence: None)
  Receive Date: 20110912
  Receipt Date: 20110902
  Transmission Date: 20111222
  Serious: Yes (Hospitalization, Other)
  Sender: FDA-Public Use
  Company Number: ACO_26484_2011

PATIENT
  Age: 41 Year
  Sex: Female
  Weight: 60.3 kg

DRUGS (1)
  1. AMPYRA [Suspect]
     Indication: GAIT DISTURBANCE
     Dosage: 10 MG, QD, ORAL
     Route: 048
     Dates: start: 20110701, end: 20110801

REACTIONS (5)
  - DEHYDRATION [None]
  - CYSTITIS [None]
  - FLUID INTAKE REDUCED [None]
  - DECREASED APPETITE [None]
  - INAPPROPRIATE SCHEDULE OF DRUG ADMINISTRATION [None]
